FAERS Safety Report 6389088-9 (Version None)
Quarter: 2009Q4

REPORT INFORMATION
  Report Type: 
  Country: None (occurrence: None)
  Receive Date: 20091006
  Receipt Date: 20090925
  Transmission Date: 20100525
  Serious: Yes (Other)
  Sender: FDA-Public Use
  Company Number: US-BIOGENIDEC-2009BI027688

PATIENT
  Age: 51 Year
  Sex: Female

DRUGS (2)
  1. TYSABRI [Suspect]
     Indication: MULTIPLE SCLEROSIS
     Route: 042
     Dates: start: 20090129
  2. REBIF [Concomitant]
     Indication: MULTIPLE SCLEROSIS
     Dates: start: 20090201

REACTIONS (9)
  - AORTIC DISORDER [None]
  - ASTHENIA [None]
  - CARDIOMEGALY [None]
  - CYSTITIS [None]
  - ENTERITIS INFECTIOUS [None]
  - FEMORAL ARTERY OCCLUSION [None]
  - GAIT DISTURBANCE [None]
  - KIDNEY INFECTION [None]
  - MUSCULAR WEAKNESS [None]
